FAERS Safety Report 8492435-5 (Version None)
Quarter: 2012Q3

REPORT INFORMATION
  Report Type: 
  Country: None (occurrence: None)
  Receive Date: 20120706
  Receipt Date: 20120628
  Transmission Date: 20120928
  Serious: Yes (Death, Hospitalization)
  Sender: FDA-Public Use
  Company Number: DO-PFIZER INC-2012070720

PATIENT
  Sex: Male

DRUGS (5)
  1. CATAPRES [Concomitant]
  2. LASIX [Concomitant]
  3. PANTOPRAZOLE [Suspect]
     Indication: PROPHYLAXIS
     Dosage: 40 MG, UNK
  4. CLOPIDOGREL [Concomitant]
  5. VITALUX [Concomitant]

REACTIONS (3)
  - CEREBRAL INFARCTION [None]
  - DEATH [None]
  - MYOCARDIAL INFARCTION [None]
